FAERS Safety Report 11284577 (Version 1)
Quarter: 2015Q3

REPORT INFORMATION
  Report Type: Spontaneous
  Country: US (occurrence: US)
  Receive Date: 20150720
  Receipt Date: 20150720
  Transmission Date: 20151125
  Serious: No
  Sender: FDA-Public Use
  Company Number: US-ASTRAZENECA-2015SE66545

PATIENT
  Sex: Female
  Weight: 92.5 kg

DRUGS (6)
  1. METOPROLOL SUCCINATE ER [Suspect]
     Active Substance: METOPROLOL SUCCINATE
     Route: 048
  2. BYDUREON [Suspect]
     Active Substance: EXENATIDE
     Route: 058
  3. LANTUS [Concomitant]
     Active Substance: INSULIN GLARGINE
  4. ATORVASTATIN [Concomitant]
     Active Substance: ATORVASTATIN
     Route: 048
  5. VALSARTAN HCTZ [Concomitant]
     Active Substance: HYDROCHLOROTHIAZIDE\VALSARTAN
     Route: 048
  6. GLUMETZA XR [Concomitant]
     Route: 048

REACTIONS (4)
  - Weight decreased [Unknown]
  - Product quality issue [Unknown]
  - Injection site nodule [Unknown]
  - Underdose [Unknown]
